FAERS Safety Report 8448332-4 (Version None)
Quarter: 2012Q2

REPORT INFORMATION
  Report Type: 
  Country: None (occurrence: None)
  Receive Date: 20120619
  Receipt Date: 20120615
  Transmission Date: 20120825
  Serious: No
  Sender: FDA-Public Use
  Company Number: US-PFIZER INC-2012145137

PATIENT
  Sex: Female
  Weight: 45.351 kg

DRUGS (5)
  1. LYRICA [Suspect]
     Indication: NEUROPATHY PERIPHERAL
     Dosage: 50 MG, UNK
     Dates: start: 20120101, end: 20120101
  2. LYRICA [Suspect]
     Dosage: 200 MG, UNK
     Dates: start: 20120101, end: 20120101
  3. LYRICA [Suspect]
     Dosage: 150 MG, UNK
     Dates: start: 20120101, end: 20120613
  4. PAXIL [Concomitant]
     Indication: ANXIETY
     Dosage: 20 MG, DAILY
  5. HYDROCODONE [Concomitant]
     Indication: PAIN IN EXTREMITY
     Dosage: 10 MG, 4X/DAY

REACTIONS (5)
  - SKIN EXFOLIATION [None]
  - DISTURBANCE IN ATTENTION [None]
  - RASH [None]
  - DRY SKIN [None]
  - PLANTAR ERYTHEMA [None]
